FAERS Safety Report 16747002 (Version 2)
Quarter: 2019Q4

REPORT INFORMATION
  Report Type: Spontaneous
  Country: US (occurrence: US)
  Receive Date: 20190827
  Receipt Date: 20191108
  Transmission Date: 20200122
  Serious: No
  Sender: FDA-Public Use
  Company Number: US-SA-2019SA235445

PATIENT
  Age: 72 Year
  Sex: Male
  Weight: 73.02 kg

DRUGS (6)
  1. PREDNISONE. [Concomitant]
     Active Substance: PREDNISONE
     Dosage: 40 MG THUR AND WED
  2. PREDNISONE. [Concomitant]
     Active Substance: PREDNISONE
     Dosage: 20 MG SUN AND MON
  3. PREDNISONE. [Concomitant]
     Active Substance: PREDNISONE
     Dosage: 10 MG TUE, THUR, SAT
  4. PREDNISONE. [Concomitant]
     Active Substance: PREDNISONE
     Dosage: 30 MG FRI AND SAT
  5. IVIC [Concomitant]
     Indication: IMMUNODEFICIENCY COMMON VARIABLE
     Dosage: 30 G
  6. DUPIXENT [Suspect]
     Active Substance: DUPILUMAB
     Indication: ASTHMA
     Dosage: 300 MG
     Route: 058
     Dates: start: 201901, end: 20190924

REACTIONS (2)
  - Arthralgia [Unknown]
  - Fatigue [Unknown]
